FAERS Safety Report 8098323-0 (Version None)
Quarter: 2012Q1

REPORT INFORMATION
  Report Type: 
  Country: None (occurrence: None)
  Receive Date: 20120129
  Receipt Date: 20110926
  Transmission Date: 20120608
  Serious: No
  Sender: FDA-Public Use
  Company Number: US-ABBOTT-11P-163-0860223-00

PATIENT
  Sex: Female
  Weight: 70.824 kg

DRUGS (4)
  1. SYNTHROID [Concomitant]
     Indication: PRODUCT USED FOR UNKNOWN INDICATION
  2. HUMIRA [Suspect]
     Indication: RHEUMATOID ARTHRITIS
     Dates: start: 20080101
  3. FUROSEMIDE [Concomitant]
     Indication: SWELLING
  4. ZIAC [Concomitant]
     Indication: GASTRIC DISORDER

REACTIONS (2)
  - HAIR COLOUR CHANGES [None]
  - HAIR TEXTURE ABNORMAL [None]
